FAERS Safety Report 15124077 (Version 1)
Quarter: 2018Q3

REPORT INFORMATION
  Report Type: Spontaneous
  Country: SE (occurrence: SE)
  Receive Date: 20180710
  Receipt Date: 20180710
  Transmission Date: 20181010
  Serious: Yes (Hospitalization)
  Sender: FDA-Public Use
  Company Number: SE-TEVA-2018-SE-922878

PATIENT
  Age: 82 Year
  Sex: Male

DRUGS (13)
  1. MADOPARK [Concomitant]
     Active Substance: BENSERAZIDE HYDROCHLORIDE\LEVODOPA
     Route: 065
  2. GABAPENTIN. [Suspect]
     Active Substance: GABAPENTIN
     Indication: PAIN
     Dosage: 1800 MILLIGRAM DAILY;
  3. LAXIDO [Concomitant]
     Active Substance: POLYETHYLENE GLYCOL 3350\POTASSIUM CHLORIDE\SODIUM BICARBONATE\SODIUM CHLORIDE
     Route: 065
  4. ESOMEPRAZOL [Concomitant]
     Active Substance: ESOMEPRAZOLE
     Route: 065
  5. FURIX [Concomitant]
     Active Substance: FUROSEMIDE
     Route: 065
  6. CILAXORAL [Concomitant]
     Active Substance: SODIUM PICOSULFATE
     Route: 065
  7. OXIKODON [Concomitant]
     Route: 065
  8. FURIX [Concomitant]
     Active Substance: FUROSEMIDE
     Route: 065
  9. CLOPIDOGREL [Concomitant]
     Active Substance: CLOPIDOGREL BISULFATE
     Route: 065
  10. MATRIFEN 12 MIKROGRAM/TIMME DEPOTPL?STER [Suspect]
     Active Substance: FENTANYL
     Indication: PAIN
     Dates: start: 20180226
  11. ATORVASTATIN [Concomitant]
     Active Substance: ATORVASTATIN
     Route: 065
  12. GLYTRIN [Concomitant]
     Route: 065
  13. MADOPARK QUICK MITE [Concomitant]
     Active Substance: BENSERAZIDE HYDROCHLORIDE\LEVODOPA
     Route: 065

REACTIONS (1)
  - Depressed level of consciousness [Recovered/Resolved]

NARRATIVE: CASE EVENT DATE: 20180511
